FAERS Safety Report 8818752 (Version 1)
Quarter: 2012Q4

REPORT INFORMATION
  Report Type: 
  Country: US (occurrence: US)
  Receive Date: 20121001
  Receipt Date: 20121001
  Transmission Date: 20130627
  Serious: Yes (Other)
  Sender: FDA-Public Use
  Company Number: US-ROCHE-1131253

PATIENT
  Age: 81 Year
  Sex: Female

DRUGS (8)
  1. HERCEPTIN [Suspect]
     Indication: BREAST CANCER METASTATIC
     Route: 065
     Dates: start: 20000501
  2. HERCEPTIN [Suspect]
     Indication: METASTASES TO LIVER
  3. COUMADIN [Concomitant]
     Dosage: unknown
     Route: 065
  4. COUMADIN [Concomitant]
     Dosage: dose reduced
     Route: 065
  5. ADRIAMYCIN [Concomitant]
  6. NEURONTIN [Concomitant]
  7. VICODIN [Concomitant]
  8. CARDIZEM [Concomitant]

REACTIONS (9)
  - Urinary incontinence [Unknown]
  - Oedema peripheral [Unknown]
  - Asthenia [Unknown]
  - Dry skin [Unknown]
  - Somnolence [Unknown]
  - Hot flush [Unknown]
  - Dizziness [Unknown]
  - Herpes zoster [Unknown]
  - Cough [Unknown]
